FAERS Safety Report 9147099 (Version 2)
Quarter: 2013Q2

REPORT INFORMATION
  Report Type: Spontaneous
  Country: US (occurrence: US)
  Receive Date: 20130307
  Receipt Date: 20130508
  Transmission Date: 20140414
  Serious: No
  Sender: FDA-Public Use
  Company Number: US-TEVA-388404USA

PATIENT
  Sex: 0

DRUGS (1)
  1. TREANDA [Suspect]

REACTIONS (1)
  - Stress urinary incontinence [Unknown]
